FAERS Safety Report 8042249-5 (Version None)
Quarter: 2012Q1

REPORT INFORMATION
  Report Type: 
  Country: None (occurrence: None)
  Receive Date: 20120112
  Receipt Date: 20110930
  Transmission Date: 20120608
  Serious: Yes (Hospitalization)
  Sender: FDA-Public Use
  Company Number: FR-ROCHE-1029245

PATIENT
  Sex: Male

DRUGS (7)
  1. ANDROTARDYL [Concomitant]
  2. HYDROCORTISONE [Concomitant]
  3. SOMATROPIN [Suspect]
     Route: 058
     Dates: start: 20110620
  4. JANUMET [Concomitant]
     Indication: DIABETES MELLITUS
  5. SOMATROPIN [Suspect]
     Indication: GROWTH HORMONE DEFICIENCY
     Route: 058
     Dates: start: 20080901, end: 20101122
  6. LEVOTHYROXINE SODIUM [Concomitant]
  7. AMARYL [Concomitant]
     Indication: DIABETES MELLITUS

REACTIONS (1)
  - CRANIOPHARYNGIOMA [None]
